FAERS Safety Report 7880502-6 (Version None)
Quarter: 2011Q4

REPORT INFORMATION
  Report Type: 
  Country: None (occurrence: None)
  Receive Date: 20111101
  Receipt Date: 20111026
  Transmission Date: 20120403
  Serious: Yes (Other)
  Sender: FDA-Public Use
  Company Number: PHHY2011IT94081

PATIENT
  Sex: Female

DRUGS (3)
  1. VINORELBINE [Suspect]
     Indication: BREAST CANCER
     Dosage: 49 MG,(CYCLIC)
     Route: 042
     Dates: start: 20110506
  2. ZOMETA [Suspect]
     Indication: OSTEOPOROSIS PROPHYLAXIS
     Dosage: 4 MG, (CYCLIC)
     Route: 042
     Dates: start: 20110506
  3. TELMISARTAN AND HYDROCHLOROTHIAZIDE [Concomitant]

REACTIONS (2)
  - NEUTROPENIA [None]
  - HYPERTRANSAMINASAEMIA [None]
